FAERS Safety Report 23425468 (Version 1)
Quarter: 2024Q1

REPORT INFORMATION
  Report Type: Spontaneous
  Country: IT (occurrence: None)
  Receive Date: 20240122
  Receipt Date: 20240122
  Transmission Date: 20240409
  Serious: Yes (Other)
  Sender: FDA-Public Use
  Company Number: 2024A015204

PATIENT
  Age: 19 Year
  Sex: Female

DRUGS (5)
  1. SEROQUEL [Suspect]
     Active Substance: QUETIAPINE FUMARATE
     Indication: Drug abuse
     Dosage: THE PATIENT TAKES 4 SEROQUEL 150 MG TABLETS
     Route: 048
     Dates: start: 20240112
  2. IBUPROFEN [Suspect]
     Active Substance: IBUPROFEN
     Indication: Drug abuse
     Dosage: THE PATIENT TOOK NUROFEN 4 TABLETS
     Route: 048
     Dates: start: 20240112
  3. SERTRALINE [Concomitant]
     Active Substance: SERTRALINE HYDROCHLORIDE
  4. LAMOTRIGINE [Concomitant]
     Active Substance: LAMOTRIGINE
  5. QUETIAPINE [Concomitant]
     Active Substance: QUETIAPINE

REACTIONS (2)
  - Drug abuse [Recovering/Resolving]
  - Somnolence [Recovering/Resolving]

NARRATIVE: CASE EVENT DATE: 20240112
